FAERS Safety Report 7132710-X (Version None)
Quarter: 2010Q4

REPORT INFORMATION
  Report Type: 
  Country: None (occurrence: None)
  Receive Date: 20101202
  Receipt Date: 20101119
  Transmission Date: 20110411
  Serious: Yes (Hospitalization, Other)
  Sender: FDA-Public Use
  Company Number: DE-ACTELION-A-US2010-42005

PATIENT

DRUGS (1)
  1. ILOPROST INHALATION ROW [Suspect]
     Indication: PRODUCT USED FOR UNKNOWN INDICATION
     Dosage: UNK UG, 6 X DAY
     Route: 055
     Dates: start: 20100813

REACTIONS (2)
  - CONDITION AGGRAVATED [None]
  - COR PULMONALE [None]
